FAERS Safety Report 19293334 (Version 1)
Quarter: 2021Q2

REPORT INFORMATION
  Report Type: Spontaneous
  Country: US (occurrence: US)
  Receive Date: 20210523
  Receipt Date: 20210523
  Transmission Date: 20210717
  Serious: No
  Sender: FDA-Public Use
  Company Number: None

PATIENT
  Age: 70 Year
  Sex: Male
  Weight: 49.9 kg

DRUGS (9)
  1. BICILLIN L?A [Concomitant]
     Active Substance: PENICILLIN G BENZATHINE
  2. ATORVASTATIN CALCIUM. [Concomitant]
     Active Substance: ATORVASTATIN CALCIUM
  3. DIGOXIN. [Concomitant]
     Active Substance: DIGOXIN
  4. ABIRATERONE. [Suspect]
     Active Substance: ABIRATERONE ACETATE
     Indication: PROSTATE CANCER
     Route: 048
     Dates: start: 20210426
  5. CARVEDILOL. [Concomitant]
     Active Substance: CARVEDILOL
  6. PLAVIX [Concomitant]
     Active Substance: CLOPIDOGREL BISULFATE
  7. SPIRONOLACTONE. [Concomitant]
     Active Substance: SPIRONOLACTONE
  8. AMIODARONE HCL IN DEXTROSE [Concomitant]
  9. ELIQUIS [Concomitant]
     Active Substance: APIXABAN

REACTIONS (1)
  - Hot flush [None]

NARRATIVE: CASE EVENT DATE: 20210522
